FAERS Safety Report 5766191-5 (Version None)
Quarter: 2008Q2

REPORT INFORMATION
  Report Type: 
  Country: None (occurrence: None)
  Receive Date: 20080611
  Receipt Date: 20080602
  Transmission Date: 20081010
  Serious: Yes (Death, Life-Threatening, Other)
  Sender: FDA-Public Use
  Company Number: US-ELI_LILLY_AND_COMPANY-US200806000328

PATIENT
  Sex: Female

DRUGS (3)
  1. FORTEO [Suspect]
     Dates: start: 20080101
  2. PLAVIX [Concomitant]
  3. AGGRENOX [Concomitant]

REACTIONS (4)
  - CEREBRAL HAEMORRHAGE [None]
  - ISCHAEMIC STROKE [None]
  - UNRESPONSIVE TO STIMULI [None]
  - VASCULAR RUPTURE [None]
